FAERS Safety Report 9286863 (Version 2)
Quarter: 2013Q3

REPORT INFORMATION
  Report Type: Spontaneous
  Country: US (occurrence: US)
  Receive Date: 20130513
  Receipt Date: 20130701
  Transmission Date: 20140515
  Serious: No
  Sender: FDA-Public Use
  Company Number: US-PFIZER INC-2013145971

PATIENT
  Sex: Male

DRUGS (2)
  1. ADVIL [Suspect]
     Indication: HEADACHE
     Dosage: UNK, AS NEEDED
     Route: 048
  2. CALCIUM [Concomitant]
     Dosage: UNK, ONCE A DAY

REACTIONS (5)
  - Poor quality drug administered [Unknown]
  - Drug ineffective [Unknown]
  - Headache [Recovered/Resolved]
  - Product quality issue [Unknown]
  - Product colour issue [Unknown]
